FAERS Safety Report 25145008 (Version 1)
Quarter: 2025Q2

REPORT INFORMATION
  Report Type: Spontaneous
  Country: US (occurrence: None)
  Receive Date: 20250331
  Receipt Date: 20250331
  Transmission Date: 20250717
  Serious: Yes (Hospitalization)
  Sender: FDA-CTU
  Company Number: None

PATIENT
  Age: 32 Year
  Sex: Female
  Weight: 94.05 kg

DRUGS (5)
  1. CERVIDIL [Suspect]
     Active Substance: DINOPROSTONE
     Indication: Labour induction
     Dates: start: 20250330, end: 20250331
  2. ZOFRAN [Concomitant]
     Active Substance: ONDANSETRON HYDROCHLORIDE
  3. VITAMINS [Concomitant]
     Active Substance: VITAMINS
  4. PRILOSEC [Concomitant]
     Active Substance: OMEPRAZOLE MAGNESIUM
  5. IRON [Concomitant]
     Active Substance: IRON

REACTIONS (4)
  - Nausea [None]
  - Dizziness [None]
  - Headache [None]
  - Uterine contractions abnormal [None]

NARRATIVE: CASE EVENT DATE: 20250331
